FAERS Safety Report 6984097-0 (Version None)
Quarter: 2010Q3

REPORT INFORMATION
  Report Type: 
  Country: None (occurrence: None)
  Receive Date: 20100915
  Receipt Date: 20090709
  Transmission Date: 20110219
  Serious: No
  Sender: FDA-Public Use
  Company Number: US-WYE-H10099709

PATIENT
  Age: 61 Year
  Sex: Male
  Weight: 209 kg

DRUGS (2)
  1. ADVIL LIQUI-GELS [Suspect]
     Indication: TOOTHACHE
     Route: 048
     Dates: start: 20090709, end: 20090709
  2. LOTREL [Concomitant]

REACTIONS (1)
  - HYPOAESTHESIA [None]
